FAERS Safety Report 9257482 (Version 1)
Quarter: 2013Q1

REPORT INFORMATION
  Report Type: Spontaneous
  Country: US (occurrence: None)
  Receive Date: 20121212
  Receipt Date: 20121212
  Transmission Date: 20140127
  Serious: No
  Sender: FDA-Public Use
  Company Number: 1208USA003427

PATIENT
  Age: 61 Year
  Sex: Female
  Weight: 68 kg

DRUGS (3)
  1. VICTRELIS [Suspect]
     Indication: HEPATITIS C
     Dates: start: 20120716
  2. REBETOL [Suspect]
     Indication: HEPATITIS C
     Dates: start: 20120618
  3. PEGASYS [Concomitant]

REACTIONS (9)
  - Anaemia [None]
  - Arthritis [None]
  - Full blood count decreased [None]
  - Dysgeusia [None]
  - Stomatitis [None]
  - Weight increased [None]
  - Pyrexia [None]
  - Cough [None]
  - Rash [None]
